FAERS Safety Report 14476151 (Version 1)
Quarter: 2018Q1

REPORT INFORMATION
  Report Type: Spontaneous
  Country: GB (occurrence: GB)
  Receive Date: 20180201
  Receipt Date: 20180201
  Transmission Date: 20180509
  Serious: Yes (Hospitalization, Other)
  Sender: FDA-Public Use
  Company Number: GB-PFIZER INC-2018038147

PATIENT
  Age: 62 Year
  Sex: Male
  Weight: 105 kg

DRUGS (7)
  1. RIFAXIMIN. [Concomitant]
     Active Substance: RIFAXIMIN
  2. DULOXETINE. [Concomitant]
     Active Substance: DULOXETINE
  3. OXYCODONE HYDROCHLORIDE. [Concomitant]
     Active Substance: OXYCODONE HYDROCHLORIDE
  4. DAPTOMYCIN. [Suspect]
     Active Substance: DAPTOMYCIN
     Indication: INFECTION
     Dosage: 850 MG, 1X/DAY
     Route: 042
     Dates: start: 20171215, end: 20171230
  5. PREGABALIN. [Concomitant]
     Active Substance: PREGABALIN
  6. CETIRIZINE [Concomitant]
     Active Substance: CETIRIZINE HYDROCHLORIDE
  7. MIRTAZAPINE. [Concomitant]
     Active Substance: MIRTAZAPINE

REACTIONS (7)
  - Eosinophilic pneumonia acute [Recovered/Resolved]
  - Cough [Recovering/Resolving]
  - Oxygen saturation decreased [Recovering/Resolving]
  - Hypoxia [Recovering/Resolving]
  - Crepitations [Recovering/Resolving]
  - Dyspnoea [Recovering/Resolving]
  - Acute kidney injury [Recovering/Resolving]

NARRATIVE: CASE EVENT DATE: 20171229
